FAERS Safety Report 5450014-8 (Version None)
Quarter: 2007Q3

REPORT INFORMATION
  Report Type: 
  Country: None (occurrence: None)
  Receive Date: 20070912
  Receipt Date: 20070907
  Transmission Date: 20080115
  Serious: Yes (Death, Hospitalization)
  Sender: FDA-Public Use
  Company Number: US-JNJFOC-20061000263

PATIENT
  Sex: Male
  Weight: 108.86 kg

DRUGS (10)
  1. RISPERDAL [Suspect]
     Indication: OBSESSIVE-COMPULSIVE DISORDER
  2. RISPERDAL [Suspect]
     Indication: TOURETTE'S DISORDER
  3. SEROQUEL [Suspect]
     Indication: OBSESSIVE-COMPULSIVE DISORDER
  4. SEROQUEL [Suspect]
     Indication: TOURETTE'S DISORDER
  5. TRILEPTAL [Concomitant]
  6. GUANFACINE HYDROCHLORIDE [Concomitant]
  7. LUVOX [Concomitant]
  8. RITALIN [Concomitant]
  9. MINOCYCLINE HCL [Concomitant]
  10. TEGRETOL [Concomitant]

REACTIONS (2)
  - PANCREATITIS ACUTE [None]
  - WEIGHT INCREASED [None]
